FAERS Safety Report 21494453 (Version 3)
Quarter: 2022Q4

REPORT INFORMATION
  Report Type: Spontaneous
  Country: DE (occurrence: DE)
  Receive Date: 20221021
  Receipt Date: 20221110
  Transmission Date: 20230113
  Serious: No
  Sender: FDA-Public Use
  Company Number: DE-BAUSCHBL-2022BNL000282

PATIENT
  Age: 80 Year
  Sex: Female

DRUGS (1)
  1. GENTAMICIN SULFATE [Suspect]
     Active Substance: GENTAMICIN SULFATE
     Indication: Conjunctivitis
     Route: 047
     Dates: start: 20220909, end: 20220911

REACTIONS (5)
  - Purulent discharge [Recovering/Resolving]
  - Instillation site erythema [Recovering/Resolving]
  - Eye discharge [Recovering/Resolving]
  - Instillation site pain [Recovering/Resolving]
  - Condition aggravated [Recovering/Resolving]

NARRATIVE: CASE EVENT DATE: 20220901
